FAERS Safety Report 4523296-4 (Version None)
Quarter: 2004Q4

REPORT INFORMATION
  Report Type: 
  Country: None (occurrence: None)
  Receive Date: 20041208
  Receipt Date: 20031130
  Transmission Date: 20050328
  Serious: Yes (Life-Threatening, Hospitalization, Disabling)
  Sender: FDA-Public Use
  Company Number: 2003PK01435

PATIENT
  Age: 69 Year
  Sex: Male

DRUGS (19)
  1. IRESSA [Suspect]
     Indication: COLORECTAL CANCER
     Dosage: 250 MG DAILY PO
     Route: 048
     Dates: start: 20030716, end: 20030815
  2. IRINOTECAN [Suspect]
     Indication: COLORECTAL CANCER
     Dosage: 113 MG IV
     Route: 042
     Dates: start: 20030722, end: 20030722
  3. IRINOTECAN [Suspect]
     Indication: COLORECTAL CANCER
     Dosage: 113 MG IV
     Route: 042
     Dates: start: 20030729, end: 20030729
  4. IRINOTECAN [Suspect]
     Indication: COLORECTAL CANCER
     Dosage: 113 MG IV
     Route: 042
     Dates: start: 20030805, end: 20030805
  5. IRINOTECAN [Suspect]
     Indication: COLORECTAL CANCER
     Dosage: 113 MG IV
     Route: 042
     Dates: start: 20030812, end: 20030812
  6. 5-FLOUROURACIL [Suspect]
     Indication: COLORECTAL CANCER
     Dosage: 3000 MG IV
     Route: 042
     Dates: start: 20030722, end: 20030722
  7. 5-FLOUROURACIL [Suspect]
     Indication: COLORECTAL CANCER
     Dosage: 3000 MG IV
     Route: 042
     Dates: start: 20030729, end: 20030729
  8. 5-FLOUROURACIL [Suspect]
     Indication: COLORECTAL CANCER
     Dosage: 3000 MG IV
     Route: 042
     Dates: start: 20030805, end: 20030805
  9. 5-FLOUROURACIL [Suspect]
     Indication: COLORECTAL CANCER
     Dosage: 3000 MG IV
     Route: 042
     Dates: start: 20030812, end: 20030812
  10. VERGENTAN [Concomitant]
  11. NAVOBAN [Concomitant]
  12. ATROPINE [Concomitant]
  13. PANTOZOLE [Concomitant]
  14. VIANI [Concomitant]
  15. TRIAMPUR COMPOSITUM [Concomitant]
  16. PROSTAGUTT FORTE [Concomitant]
  17. NOVALGIN [Concomitant]
  18. IMODIUM [Concomitant]
  19. FOLINIC ACID [Concomitant]

REACTIONS (6)
  - ANOSMIA [None]
  - APHASIA [None]
  - CONFUSIONAL STATE [None]
  - DISORIENTATION [None]
  - PSYCHOTIC DISORDER [None]
  - VERTIGO [None]
